FAERS Safety Report 22346263 (Version 1)
Quarter: 2023Q2

REPORT INFORMATION
  Report Type: Other
  Country: None (occurrence: TR)
  Receive Date: 20230519
  Receipt Date: 20230519
  Transmission Date: 20230721
  Serious: Yes (Hospitalization)
  Sender: FDA-Public Use
  Company Number: TR-B.Braun Medical Inc.-2141788

PATIENT
  Age: 31 Year
  Sex: Female

DRUGS (3)
  1. BUPIVACAINE HYDROCHLORIDE WITH DEXTROSE [Suspect]
     Active Substance: BUPIVACAINE HYDROCHLORIDE
     Indication: Anaesthesia
     Route: 037
  2. MORPHINE [Suspect]
     Active Substance: MORPHINE
  3. FENTANYL [Suspect]
     Active Substance: FENTANYL

REACTIONS (3)
  - Anaesthetic complication [Unknown]
  - Procedural hypotension [Unknown]
  - Maternal exposure during delivery [Unknown]
